FAERS Safety Report 21988581 (Version 1)
Quarter: 2023Q1

REPORT INFORMATION
  Report Type: Spontaneous
  Country: BD (occurrence: BD)
  Receive Date: 20230214
  Receipt Date: 20230214
  Transmission Date: 20230417
  Serious: No
  Sender: FDA-Public Use
  Company Number: None

PATIENT
  Age: 23 Year
  Sex: Male

DRUGS (2)
  1. LINEZOLID [Suspect]
     Active Substance: LINEZOLID
     Indication: Furuncle
     Dosage: 600 MILLIGRAM, BID
     Route: 048
  2. LINEZOLID [Suspect]
     Active Substance: LINEZOLID
     Indication: Staphylococcal infection

REACTIONS (3)
  - Sensation of foreign body [Recovered/Resolved]
  - Trichoglossia [Recovered/Resolved]
  - Hypogeusia [Recovered/Resolved]
